FAERS Safety Report 25533348 (Version 1)
Quarter: 2025Q3

REPORT INFORMATION
  Report Type: Spontaneous
  Country: US (occurrence: US)
  Receive Date: 20250709
  Receipt Date: 20250709
  Transmission Date: 20251021
  Serious: Yes (Other)
  Sender: MYLAN
  Company Number: US-MYLANLABS-2025M1056154

PATIENT
  Age: 75 Year
  Sex: Female

DRUGS (16)
  1. PREDNISONE [Interacting]
     Active Substance: PREDNISONE
     Indication: Immune-mediated myositis
  2. PREDNISONE [Interacting]
     Active Substance: PREDNISONE
     Route: 065
  3. PREDNISONE [Interacting]
     Active Substance: PREDNISONE
     Route: 065
  4. PREDNISONE [Interacting]
     Active Substance: PREDNISONE
  5. MYCOPHENOLATE MOFETIL [Interacting]
     Active Substance: MYCOPHENOLATE MOFETIL
     Indication: Immune-mediated myositis
  6. MYCOPHENOLATE MOFETIL [Interacting]
     Active Substance: MYCOPHENOLATE MOFETIL
     Route: 065
  7. MYCOPHENOLATE MOFETIL [Interacting]
     Active Substance: MYCOPHENOLATE MOFETIL
     Route: 065
  8. MYCOPHENOLATE MOFETIL [Interacting]
     Active Substance: MYCOPHENOLATE MOFETIL
  9. HERBALS [Interacting]
     Active Substance: HERBALS
     Indication: Hyperlipidaemia
  10. HERBALS [Interacting]
     Active Substance: HERBALS
     Route: 065
  11. HERBALS [Interacting]
     Active Substance: HERBALS
     Route: 065
  12. HERBALS [Interacting]
     Active Substance: HERBALS
  13. OMEPRAZOLE [Interacting]
     Active Substance: OMEPRAZOLE
     Indication: Product used for unknown indication
  14. OMEPRAZOLE [Interacting]
     Active Substance: OMEPRAZOLE
     Route: 065
  15. OMEPRAZOLE [Interacting]
     Active Substance: OMEPRAZOLE
     Route: 065
  16. OMEPRAZOLE [Interacting]
     Active Substance: OMEPRAZOLE

REACTIONS (6)
  - Toxicity to various agents [Recovering/Resolving]
  - Cushing^s syndrome [Recovering/Resolving]
  - Herbal interaction [Recovering/Resolving]
  - Drug interaction [Unknown]
  - Drug level decreased [Unknown]
  - Off label use [Unknown]
